FAERS Safety Report 16671584 (Version 1)
Quarter: 2019Q3

REPORT INFORMATION
  Report Type: Spontaneous
  Country: BG (occurrence: BG)
  Receive Date: 20190806
  Receipt Date: 20190806
  Transmission Date: 20191004
  Serious: Yes (Hospitalization, Other)
  Sender: FDA-Public Use
  Company Number: BG-TERSERA THERAPEUTICS LLC-2019TRS001370

PATIENT

DRUGS (1)
  1. ERGOMAR [Suspect]
     Active Substance: ERGOTAMINE TARTRATE
     Indication: MIGRAINE
     Dosage: 6 MG, QD
     Route: 065

REACTIONS (2)
  - Toxicity to various agents [Unknown]
  - Stress cardiomyopathy [Unknown]
